FAERS Safety Report 5917645-X (Version None)
Quarter: 2008Q4

REPORT INFORMATION
  Report Type: 
  Country: None (occurrence: None)
  Receive Date: 20081014
  Receipt Date: 20081003
  Transmission Date: 20090506
  Serious: Yes (Death, Other)
  Sender: FDA-Public Use
  Company Number: FR-BRISTOL-MYERS SQUIBB COMPANY-14368104

PATIENT
  Age: 81 Year
  Sex: Female

DRUGS (8)
  1. GLUCOPHAGE [Suspect]
     Indication: DIABETES MELLITUS
     Route: 048
     Dates: start: 20080822, end: 20080829
  2. SERESTA [Concomitant]
  3. EBIXA [Concomitant]
  4. CORDARONE [Concomitant]
  5. LASIX [Concomitant]
  6. NORSET [Concomitant]
  7. DIFFU-K [Concomitant]
  8. MOVICOL [Concomitant]

REACTIONS (6)
  - ANOREXIA [None]
  - HEPATIC FAILURE [None]
  - HYPOGLYCAEMIA [None]
  - RENAL FAILURE [None]
  - THROMBOCYTOPENIA [None]
  - VOMITING [None]
